FAERS Safety Report 9403756 (Version 1)
Quarter: 2013Q3

REPORT INFORMATION
  Report Type: Spontaneous
  Country: DE (occurrence: DE)
  Receive Date: 20130717
  Receipt Date: 20130717
  Transmission Date: 20140515
  Serious: Yes (Hospitalization, Other)
  Sender: FDA-Public Use
  Company Number: DE-ROCHE-1228537

PATIENT
  Age: 78 Year
  Sex: Female
  Weight: 66 kg

DRUGS (5)
  1. MABTHERA [Suspect]
     Indication: NON-HODGKIN^S LYMPHOMA
     Route: 042
     Dates: start: 20130326, end: 20130521
  2. ONDANSETRON [Suspect]
     Indication: NAUSEA
     Route: 048
     Dates: start: 20130404, end: 20130610
  3. BENDAMUSTINE [Concomitant]
     Indication: NON-HODGKIN^S LYMPHOMA
     Route: 042
     Dates: start: 20130327, end: 20130619
  4. CLEMASTIN [Concomitant]
     Indication: PROPHYLAXIS
     Dosage: 1 AMPULE
     Route: 042
     Dates: start: 20130326, end: 20130521
  5. PREDNISOLON [Concomitant]
     Indication: PROPHYLAXIS
     Route: 042
     Dates: start: 20130326, end: 20130521

REACTIONS (5)
  - Hypersensitivity [Recovered/Resolved]
  - Swelling face [Recovered/Resolved]
  - Swollen tongue [Recovered/Resolved]
  - Dysphonia [Recovered/Resolved]
  - Pyrexia [Recovered/Resolved]
